FAERS Safety Report 19582379 (Version 1)
Quarter: 2021Q3

REPORT INFORMATION
  Report Type: Spontaneous
  Country: US (occurrence: US)
  Receive Date: 20210720
  Receipt Date: 20210720
  Transmission Date: 20211014
  Serious: No
  Sender: FDA-Public Use
  Company Number: None

PATIENT
  Age: 40 Year
  Sex: Female
  Weight: 66.6 kg

DRUGS (1)
  1. HUMIRA [Suspect]
     Active Substance: ADALIMUMAB
     Indication: RHEUMATOID ARTHRITIS
     Dosage: ?          OTHER FREQUENCY:EVERY 2 WEEKS;?
     Route: 058
     Dates: start: 20210625, end: 20210709

REACTIONS (6)
  - Urticaria [None]
  - Headache [None]
  - Injection site erythema [None]
  - Burning sensation [None]
  - Peripheral swelling [None]
  - Contusion [None]

NARRATIVE: CASE EVENT DATE: 20210709
